FAERS Safety Report 7299202-9 (Version None)
Quarter: 2011Q1

REPORT INFORMATION
  Report Type: 
  Country: None (occurrence: None)
  Receive Date: 20110217
  Receipt Date: 20110210
  Transmission Date: 20110831
  Serious: Yes (Hospitalization)
  Sender: FDA-Public Use
  Company Number: FR-PFIZER INC-2011021491

PATIENT
  Age: 50 Year
  Sex: Female

DRUGS (7)
  1. LEVOTHYROX [Concomitant]
     Indication: BLOOD THYROID STIMULATING HORMONE DECREASED
     Dosage: 100 UG, 1X/DAY
     Route: 048
     Dates: start: 20081110
  2. SOMATROPIN [Suspect]
     Dosage: 0.3 MG, 1X/DAY
     Route: 030
     Dates: start: 20061011, end: 20101022
  3. ESTREVA [Suspect]
     Indication: BLOOD FOLLICLE STIMULATING HORMONE DECREASED
  4. ESTREVA [Suspect]
     Indication: BLOOD LUTEINISING HORMONE DECREASED
     Dosage: 2 DF, DAILY
     Route: 048
     Dates: start: 20061011, end: 20101022
  5. UTROGESTAN [Suspect]
     Indication: BLOOD LUTEINISING HORMONE DECREASED
     Dosage: 200 MG, 1X/DAY
     Route: 048
     Dates: start: 20061011, end: 20101022
  6. UTROGESTAN [Suspect]
     Indication: BLOOD FOLLICLE STIMULATING HORMONE DECREASED
  7. HYDROCORTISONE [Concomitant]
     Indication: BLOOD CORTICOTROPHIN DECREASED
     Dosage: 15 MG, 1X/DAY
     Route: 048
     Dates: start: 20061011

REACTIONS (2)
  - MENINGIOMA [None]
  - NEOPLASM RECURRENCE [None]
